FAERS Safety Report 19519553 (Version 1)
Quarter: 2021Q3

REPORT INFORMATION
  Report Type: Spontaneous
  Country: US (occurrence: US)
  Receive Date: 20210712
  Receipt Date: 20210712
  Transmission Date: 20211014
  Serious: No
  Sender: FDA-Public Use
  Company Number: US-SA-2021SA221822

PATIENT
  Sex: Female

DRUGS (4)
  1. GABAPENTIN. [Concomitant]
     Active Substance: GABAPENTIN
  2. METOPROLOL. [Concomitant]
     Active Substance: METOPROLOL
  3. ELIQUIS [Concomitant]
     Active Substance: APIXABAN
  4. MULTAQ [Suspect]
     Active Substance: DRONEDARONE
     Indication: ATRIAL FIBRILLATION
     Dosage: DRUG STRUCTURE DOSAGE : 400MG DRUG INTERVAL DOSAGE : TWICE DAILY
     Dates: start: 20210701

REACTIONS (1)
  - Diarrhoea [Unknown]

NARRATIVE: CASE EVENT DATE: 20210702
